FAERS Safety Report 7154795-7 (Version None)
Quarter: 2010Q4

REPORT INFORMATION
  Report Type: 
  Country: None (occurrence: None)
  Receive Date: 20101214
  Receipt Date: 20091109
  Transmission Date: 20110411
  Serious: No
  Sender: FDA-Public Use
  Company Number: US-AMGEN-KDL373659

PATIENT

DRUGS (10)
  1. ENBREL [Suspect]
     Dosage: 50 MG, QWK
     Route: 058
  2. PREDNISONE [Concomitant]
  3. DULOXETINE HYDROCHLORIDE [Concomitant]
     Dosage: 20 MG, UNK
  4. CLONAZEPAM [Concomitant]
     Dosage: 1 MG, UNK
  5. PANTOPRAZOLE [Concomitant]
     Dosage: 20 MG, UNK
  6. PREGABALIN [Concomitant]
     Dosage: 25 MG, UNK
  7. METFORMIN [Concomitant]
     Dosage: 500 MG, UNK
  8. HYDROCODONE [Concomitant]
  9. CALCIUM WITH VITAMIN D [Concomitant]
     Dosage: UNK UNK, UNK
  10. RAMIPRIL [Concomitant]
     Dosage: 1.25 MG, UNK

REACTIONS (1)
  - DRUG INEFFECTIVE [None]
